FAERS Safety Report 11039094 (Version 1)
Quarter: 2015Q2

REPORT INFORMATION
  Report Type: Spontaneous
  Country: ES (occurrence: ES)
  Receive Date: 20150416
  Receipt Date: 20150416
  Transmission Date: 20150821
  Serious: Yes (Other)
  Sender: FDA-Public Use
  Company Number: ES-MYLANLABS-2015M1012349

PATIENT

DRUGS (1)
  1. ARGATROBAN INJECTION [Suspect]
     Active Substance: ARGATROBAN
     Dosage: 0.5 MCG/KG/MIN INFUSION
     Route: 065

REACTIONS (3)
  - Respiratory tract haemorrhage [Unknown]
  - Renal impairment [Unknown]
  - Hepatic function abnormal [Unknown]
